FAERS Safety Report 9526133 (Version 2)
Quarter: 2013Q3

REPORT INFORMATION
  Report Type: Spontaneous
  Country: US (occurrence: US)
  Receive Date: 20130916
  Receipt Date: 20130926
  Transmission Date: 20140515
  Serious: Yes (Hospitalization, Other)
  Sender: FDA-Public Use
  Company Number: US-JNJFOC-20130901700

PATIENT
  Age: 89 Year
  Sex: Male
  Weight: 68.95 kg

DRUGS (14)
  1. TYLENOL EXTRA STRENGTH [Suspect]
     Route: 048
  2. TYLENOL EXTRA STRENGTH [Suspect]
     Indication: PAIN
     Route: 048
  3. ASPIRIN [Concomitant]
     Indication: CARDIAC DISORDER
     Dosage: 81 GRAIN
     Route: 065
  4. NEXAVAR [Concomitant]
     Indication: NEOPLASM MALIGNANT
     Route: 065
     Dates: start: 201302
  5. DIGOXIN [Concomitant]
     Indication: CARDIAC DISORDER
     Route: 065
  6. KLORCON [Concomitant]
     Indication: CARDIAC DISORDER
     Route: 065
  7. METOLAZONE [Concomitant]
     Indication: DIURETIC THERAPY
     Route: 065
  8. LACTOBACILLUS ACIDOPHILIUS [Concomitant]
     Indication: CONSTIPATION
     Route: 065
  9. LOSARTAN [Concomitant]
     Indication: HYPERTENSION
     Route: 065
  10. ATORVASTATIN [Concomitant]
     Indication: BLOOD CHOLESTEROL INCREASED
     Route: 065
  11. FOLIC ACID [Concomitant]
     Indication: NUTRITIONAL SUPPLEMENTATION
     Route: 065
  12. PLAVIX [Concomitant]
     Indication: CARDIAC DISORDER
     Route: 065
  13. CARVEDILOL [Concomitant]
     Indication: HYPERTENSION
     Dosage: 3.125
     Route: 065
  14. TAMSULOSIN [Concomitant]
     Indication: PROSTATOMEGALY
     Route: 065

REACTIONS (1)
  - Hepatic cancer [Not Recovered/Not Resolved]
